FAERS Safety Report 17844567 (Version 1)
Quarter: 2020Q2

REPORT INFORMATION
  Report Type: Report from Study
  Country: JP (occurrence: JP)
  Receive Date: 20200601
  Receipt Date: 20200601
  Transmission Date: 20200714
  Serious: Yes (Other)
  Sender: FDA-Public Use
  Company Number: JP-ROCHE-2605075

PATIENT

DRUGS (1)
  1. BALOXAVIR MARBOXIL. [Suspect]
     Active Substance: BALOXAVIR MARBOXIL
     Indication: INFLUENZA
     Route: 048

REACTIONS (15)
  - Vomiting [Unknown]
  - Abnormal behaviour [Recovered/Resolved]
  - Febrile convulsion [Recovered/Resolved]
  - Diarrhoea [Unknown]
  - Urticaria [Unknown]
  - Abdominal pain [Unknown]
  - Delirium febrile [Unknown]
  - Dysgeusia [Unknown]
  - Delirium [Recovered/Resolved]
  - Nausea [Unknown]
  - Dizziness [Unknown]
  - Rash [Unknown]
  - Hypoaesthesia [Unknown]
  - Abdominal distension [Unknown]
  - Headache [Unknown]
